FAERS Safety Report 5137342-0 (Version None)
Quarter: 2006Q4

REPORT INFORMATION
  Report Type: 
  Country: None (occurrence: None)
  Receive Date: 20061030
  Receipt Date: 20051014
  Transmission Date: 20070319
  Serious: No
  Sender: FDA-Public Use
  Company Number: US-GLAXOSMITHKLINE-A0578290A

PATIENT
  Sex: Female

DRUGS (3)
  1. ADVAIR HFA [Suspect]
     Indication: COUGH
     Route: 055
     Dates: start: 20050901
  2. TOPAMAX [Concomitant]
  3. TENORMIN [Concomitant]

REACTIONS (3)
  - DRUG INEFFECTIVE [None]
  - HEADACHE [None]
  - PSYCHOMOTOR HYPERACTIVITY [None]
